FAERS Safety Report 18486101 (Version 2)
Quarter: 2021Q1

REPORT INFORMATION
  Report Type: Spontaneous
  Country: US (occurrence: US)
  Receive Date: 20201110
  Receipt Date: 20210104
  Transmission Date: 20210419
  Serious: Yes (Life-Threatening, Hospitalization, Other)
  Sender: FDA-Public Use
  Company Number: US-PFIZER INC-2020229624

PATIENT
  Age: 51 Year
  Sex: Male

DRUGS (3)
  1. KEYTRUDA [Suspect]
     Active Substance: PEMBROLIZUMAB
     Indication: METASTATIC RENAL CELL CARCINOMA
     Dosage: 200 MG, CYCLIC (EVERY 21 DAYS)
     Route: 042
     Dates: start: 20200702, end: 20200723
  2. INLYTA [Suspect]
     Active Substance: AXITINIB
     Indication: RENAL CANCER
     Dosage: 5 MG, 2X/DAY
     Route: 048
     Dates: start: 20200702, end: 20200723
  3. INLYTA [Suspect]
     Active Substance: AXITINIB
     Indication: METASTATIC RENAL CELL CARCINOMA

REACTIONS (6)
  - Hyperglycaemia [Recovered/Resolved with Sequelae]
  - Hypoglycaemia [Recovered/Resolved]
  - Liver function test increased [Recovered/Resolved with Sequelae]
  - Product prescribing error [Unknown]
  - Diabetes mellitus [Recovered/Resolved with Sequelae]
  - Hepatotoxicity [Unknown]

NARRATIVE: CASE EVENT DATE: 2020
